FAERS Safety Report 8854526 (Version 4)
Quarter: 2013Q4

REPORT INFORMATION
  Report Type: Spontaneous
  Country: US (occurrence: US)
  Receive Date: 20121023
  Receipt Date: 20131227
  Transmission Date: 20140711
  Serious: Yes (Hospitalization)
  Sender: FDA-Public Use
  Company Number: US-ASTRAZENECA-2012SE79310

PATIENT
  Age: 73 Year
  Sex: Female
  Weight: 81.2 kg

DRUGS (20)
  1. NEXIUM [Suspect]
     Indication: GASTROOESOPHAGEAL REFLUX DISEASE
     Route: 048
     Dates: start: 2009, end: 2009
  2. NEXIUM [Suspect]
     Indication: PHARYNGEAL CYST
     Route: 048
     Dates: start: 2009, end: 2009
  3. NEXIUM [Suspect]
     Indication: ABDOMINAL PAIN UPPER
     Route: 048
     Dates: start: 2009, end: 2009
  4. NEXIUM [Suspect]
     Indication: GASTROOESOPHAGEAL REFLUX DISEASE
     Route: 048
     Dates: start: 2009, end: 20131218
  5. NEXIUM [Suspect]
     Indication: PHARYNGEAL CYST
     Route: 048
     Dates: start: 2009, end: 20131218
  6. NEXIUM [Suspect]
     Indication: ABDOMINAL PAIN UPPER
     Route: 048
     Dates: start: 2009, end: 20131218
  7. LOSARTAN [Concomitant]
     Indication: HYPERTENSION
  8. METHOTREXATE [Concomitant]
     Indication: RHEUMATOID ARTHRITIS
     Route: 048
  9. METHOTREXATE [Concomitant]
     Indication: RHEUMATOID ARTHRITIS
     Dosage: 5 TABLETS WEEK
     Route: 048
  10. PREDNISONE [Concomitant]
     Indication: RHEUMATOID ARTHRITIS
     Route: 048
  11. HUMULOG [Concomitant]
     Indication: DIABETES MELLITUS
     Dosage: 10U 12U 14U 18U QID
     Route: 058
     Dates: start: 2011
  12. LANTUS [Concomitant]
     Indication: DIABETES MELLITUS
     Dosage: 18 UNITS DAILY
     Route: 058
     Dates: start: 2011
  13. LASIX [Concomitant]
     Indication: DIURETIC THERAPY
     Route: 048
     Dates: start: 2005
  14. OXYBUTININ [Concomitant]
     Indication: HYPERTONIC BLADDER
     Dosage: BID
     Route: 048
     Dates: start: 2012
  15. LOPRESSOR [Concomitant]
     Indication: HYPERTENSION
     Route: 048
     Dates: start: 2011
  16. FORTO [Concomitant]
     Indication: BONE DISORDER
     Route: 058
     Dates: start: 2012
  17. VITAMIN D [Concomitant]
     Indication: SUPPLEMENTATION THERAPY
     Dosage: 1000 UNITS DAILY
     Route: 048
     Dates: start: 2006
  18. FISH OIL [Concomitant]
     Indication: CARDIAC DISORDER
     Route: 048
     Dates: start: 2006
  19. POTASSIUM [Concomitant]
     Indication: SUPPLEMENTATION THERAPY
     Dosage: DAILY
     Route: 048
     Dates: start: 2012
  20. CALCIUM [Concomitant]
     Indication: SUPPLEMENTATION THERAPY
     Route: 048

REACTIONS (18)
  - Pneumonia [Unknown]
  - Pain in extremity [Unknown]
  - Thrombosis [Unknown]
  - Wound infection staphylococcal [Unknown]
  - Diabetes mellitus [Unknown]
  - Pneumonia legionella [Unknown]
  - Dyspepsia [Unknown]
  - Aphagia [Unknown]
  - Gastrooesophageal reflux disease [Unknown]
  - Sleep disorder due to general medical condition, insomnia type [Unknown]
  - Herpes zoster [Unknown]
  - Pertussis [Unknown]
  - Body height decreased [Unknown]
  - Abdominal pain upper [Unknown]
  - Malaise [Unknown]
  - Off label use [Unknown]
  - Intentional drug misuse [Unknown]
  - Drug dose omission [Unknown]
